FAERS Safety Report 17926165 (Version 1)
Quarter: 2020Q2

REPORT INFORMATION
  Report Type: Spontaneous
  Country: US (occurrence: US)
  Receive Date: 20200623
  Receipt Date: 20200623
  Transmission Date: 20200714
  Serious: No
  Sender: FDA-Public Use
  Company Number: US-GLAXOSMITHKLINE-US2020101537

PATIENT
  Sex: Male

DRUGS (1)
  1. NUCALA [Suspect]
     Active Substance: MEPOLIZUMAB
     Indication: NASAL POLYPS
     Dosage: UNK
     Route: 065

REACTIONS (7)
  - Foot amputation [Unknown]
  - Dyspnoea [Unknown]
  - Product use in unapproved indication [Unknown]
  - Off label use [Unknown]
  - Eosinophil count increased [Unknown]
  - Nasal congestion [Unknown]
  - Hand amputation [Unknown]

NARRATIVE: CASE EVENT DATE: 20200615
